FAERS Safety Report 7082627-4 (Version None)
Quarter: 2010Q4

REPORT INFORMATION
  Report Type: 
  Country: None (occurrence: None)
  Receive Date: 20101104
  Receipt Date: 20101026
  Transmission Date: 20110411
  Serious: Yes (Hospitalization)
  Sender: FDA-Public Use
  Company Number: DE-ASTRAZENECA-2010SE50711

PATIENT
  Age: 84 Year
  Sex: Male
  Weight: 84 kg

DRUGS (7)
  1. ESOMEPRAZOLE [Suspect]
     Indication: REFLUX OESOPHAGITIS
     Route: 048
  2. COTRIM [Suspect]
     Indication: URINARY TRACT INFECTION
     Dosage: 800 / 160 MG, 1 DF TWO TIMES A DAY
     Route: 048
     Dates: start: 20100606, end: 20100618
  3. BISOPROLOL [Concomitant]
     Indication: HYPERTENSION
     Route: 048
  4. TORASEMID [Concomitant]
     Indication: CARDIAC FAILURE
     Route: 048
  5. METHIMAZOLE [Concomitant]
     Indication: HYPERTHYROIDISM
     Route: 048
     Dates: end: 20100907
  6. SPIRIVA [Concomitant]
     Indication: CHRONIC OBSTRUCTIVE PULMONARY DISEASE
     Route: 055
  7. FALITHROM [Concomitant]
     Indication: ATRIAL FIBRILLATION
     Route: 048

REACTIONS (1)
  - CLOSTRIDIUM DIFFICILE COLITIS [None]
